FAERS Safety Report 19748756 (Version 1)
Quarter: 2021Q3

REPORT INFORMATION
  Report Type: Spontaneous
  Country: US (occurrence: US)
  Receive Date: 20210823
  Receipt Date: 20210823
  Transmission Date: 20211014
  Serious: No
  Sender: FDA-Public Use
  Company Number: None

PATIENT
  Age: 47 Year
  Sex: Female

DRUGS (1)
  1. SEMIGLUTIDE [Suspect]
     Active Substance: SEMAGLUTIDE
     Indication: OBESITY
     Dosage: ?          QUANTITY:0.25 INJECTION(S);?
     Route: 058
     Dates: start: 20210810, end: 20210817

REACTIONS (11)
  - Hypersensitivity [None]
  - Tremor [None]
  - Anxiety [None]
  - Presyncope [None]
  - Dizziness [None]
  - Paraesthesia oral [None]
  - Dysphagia [None]
  - Feeling hot [None]
  - Dyspnoea [None]
  - Hyperhidrosis [None]
  - Feeling jittery [None]

NARRATIVE: CASE EVENT DATE: 20210817
